FAERS Safety Report 5734521-6 (Version None)
Quarter: 2008Q2

REPORT INFORMATION
  Report Type: 
  Country: None (occurrence: None)
  Receive Date: 20080512
  Receipt Date: 20080502
  Transmission Date: 20081010
  Serious: Yes (Other)
  Sender: FDA-Public Use
  Company Number: PHEH2006US01238

PATIENT
  Age: 58 Year
  Sex: Male

DRUGS (13)
  1. ZOMETA [Suspect]
     Indication: METASTASES TO BONE
     Dosage: 4 MG, QMONTH
     Route: 042
     Dates: start: 20040501, end: 20051117
  2. LIDOCAINE [Concomitant]
  3. LUPRON [Concomitant]
     Indication: PROSTATE CANCER
     Dosage: 22.5 MG, Q3MONTHS
  4. DECETAXEL [Concomitant]
     Dosage: UNK, QW4
  5. ALNHAGAR-P [Concomitant]
     Dosage: UNK, TID
  6. TRAVANTAN [Concomitant]
     Dosage: UNK, QHS
  7. MOTRIN [Concomitant]
     Dosage: 200 MG, QD
  8. VITAMIN B1 W/VITAMIN B12 NOS/VITAMIN B6 [Concomitant]
  9. CENTRUM SILVER [Concomitant]
  10. DEXITAXOL-TAXOL [Concomitant]
     Indication: CHEMOTHERAPY
     Dosage: 120 MG, Q4WEEKS
     Route: 042
     Dates: start: 20040501
  11. DEXAMETHASONE [Concomitant]
  12. PREDNISONE TAB [Concomitant]
  13. TAXOTERE [Concomitant]
     Dates: start: 20040501

REACTIONS (35)
  - ARTIFICIAL CROWN PROCEDURE [None]
  - BIOPSY [None]
  - BIOPSY BONE ABNORMAL [None]
  - BONE DISORDER [None]
  - BONE LESION [None]
  - CENTRAL VENOUS CATHETERISATION [None]
  - CHEST X-RAY ABNORMAL [None]
  - COLONOSCOPY [None]
  - DIVERTICULUM [None]
  - FAILURE OF IMPLANT [None]
  - GINGIVAL PAIN [None]
  - GINGIVAL SWELLING [None]
  - HAEMORRHOIDS [None]
  - IMPAIRED HEALING [None]
  - IMPLANT SITE SWELLING [None]
  - INCISIONAL DRAINAGE [None]
  - INJECTION SITE EXTRAVASATION [None]
  - INTERSTITIAL LUNG DISEASE [None]
  - LIP SWELLING [None]
  - LOOSE TOOTH [None]
  - LYMPHADENOPATHY [None]
  - MEDICAL DEVICE REMOVAL [None]
  - ORAL PAIN [None]
  - OSTEITIS DEFORMANS [None]
  - OSTEOMYELITIS [None]
  - OSTEONECROSIS [None]
  - PAIN IN JAW [None]
  - PARAESTHESIA ORAL [None]
  - POSITRON EMISSION TOMOGRAM ABNORMAL [None]
  - PRIMARY SEQUESTRUM [None]
  - RIB FRACTURE [None]
  - SOFT TISSUE INJURY [None]
  - TOOTH DISORDER [None]
  - TOOTH EROSION [None]
  - X-RAY ABNORMAL [None]
